FAERS Safety Report 18811200 (Version 1)
Quarter: 2021Q1

REPORT INFORMATION
  Report Type: Spontaneous
  Country: US (occurrence: US)
  Receive Date: 20210129
  Receipt Date: 20210129
  Transmission Date: 20210419
  Serious: No
  Sender: FDA-Public Use
  Company Number: US-BAUSCH-BL-2021-000973

PATIENT
  Age: 39 Year
  Sex: Male
  Weight: 79.45 kg

DRUGS (1)
  1. DUOBRII [Suspect]
     Active Substance: HALOBETASOL PROPIONATE\TAZAROTENE
     Indication: PSORIASIS
     Dosage: IN THE MORNING
     Route: 061
     Dates: start: 2019, end: 20210107

REACTIONS (5)
  - Application site erythema [Unknown]
  - Product administered at inappropriate site [Unknown]
  - Inappropriate schedule of product administration [Unknown]
  - Application site pruritus [Unknown]
  - Application site pain [Unknown]

NARRATIVE: CASE EVENT DATE: 202101
